FAERS Safety Report 9282946 (Version 1)
Quarter: 2013Q2

REPORT INFORMATION
  Report Type: Spontaneous
  Country: US (occurrence: US)
  Receive Date: 20130510
  Receipt Date: 20130510
  Transmission Date: 20140414
  Serious: No
  Sender: FDA-Public Use
  Company Number: US-BAYER-2013-056553

PATIENT
  Age: 84 Year
  Sex: Male
  Weight: 100 kg

DRUGS (6)
  1. ALEVE TABLET [Suspect]
     Indication: BACK PAIN
     Dosage: 1 DF, QD
     Route: 048
     Dates: start: 201304
  2. BAYER ASPIRIN REGIMEN ADULT LOW STRENGTH [Suspect]
     Dosage: UNK, QD
  3. ATENOLOL [Concomitant]
  4. LIPITOR [Concomitant]
  5. XANAX [Concomitant]
     Dosage: UNK UNK, HS
  6. VIAGRA [Concomitant]

REACTIONS (2)
  - Oesophageal pain [Recovered/Resolved]
  - Foreign body [None]
